FAERS Safety Report 4429304-3 (Version None)
Quarter: 2004Q3

REPORT INFORMATION
  Report Type: 
  Country: None (occurrence: None)
  Receive Date: 20040819
  Receipt Date: 20040814
  Transmission Date: 20050211
  Serious: Yes (Other)
  Sender: FDA-Public Use
  Company Number: PHBS2004BR10725

PATIENT
  Age: 5 Year
  Sex: Male

DRUGS (1)
  1. TEGRETOL [Suspect]
     Indication: HEMIPARESIS
     Dosage: 8 ML, Q8H
     Route: 048
     Dates: start: 20000101

REACTIONS (1)
  - CONVULSION [None]
